FAERS Safety Report 19603069 (Version 2)
Quarter: 2021Q3

REPORT INFORMATION
  Report Type: Spontaneous
  Country: US (occurrence: US)
  Receive Date: 20210723
  Receipt Date: 20210723
  Transmission Date: 20211014
  Serious: No
  Sender: FDA-Public Use
  Company Number: US-SA-2021SA236985

PATIENT
  Sex: Female

DRUGS (11)
  1. PREGABALIN. [Concomitant]
     Active Substance: PREGABALIN
  2. TRAMADOL HCL [Concomitant]
     Active Substance: TRAMADOL HYDROCHLORIDE
  3. AUBAGIO [Suspect]
     Active Substance: TERIFLUNOMIDE
     Indication: MULTIPLE SCLEROSIS
     Dosage: 14 MG, QD
     Route: 048
  4. DULOXETINE. [Concomitant]
     Active Substance: DULOXETINE
  5. OMEPRAZOLE. [Concomitant]
     Active Substance: OMEPRAZOLE
  6. CELECOXIB. [Concomitant]
     Active Substance: CELECOXIB
     Dosage: UNK
  7. VITAMIN B CO [Concomitant]
  8. TIZANIDINE. [Concomitant]
     Active Substance: TIZANIDINE
  9. HYDROCODONE [Concomitant]
     Active Substance: HYDROCODONE
  10. PREDNISONE. [Concomitant]
     Active Substance: PREDNISONE
  11. VITAMIN D3 [Concomitant]
     Active Substance: CHOLECALCIFEROL

REACTIONS (1)
  - Product dose omission issue [Unknown]
